FAERS Safety Report 22344811 (Version 2)
Quarter: 2023Q2

REPORT INFORMATION
  Report Type: Spontaneous
  Country: JP (occurrence: JP)
  Receive Date: 20230519
  Receipt Date: 20230612
  Transmission Date: 20230722
  Serious: Yes (Hospitalization, Other)
  Sender: FDA-Public Use
  Company Number: JP-ABBVIE-4773008

PATIENT
  Age: 75 Year
  Sex: Male

DRUGS (1)
  1. GLECAPREVIR\PIBRENTASVIR [Suspect]
     Active Substance: GLECAPREVIR\PIBRENTASVIR
     Indication: Product used for unknown indication
     Route: 048
     Dates: start: 20230413

REACTIONS (3)
  - Cardiac failure [Recovering/Resolving]
  - Anaemia [Unknown]
  - Colon cancer [Unknown]

NARRATIVE: CASE EVENT DATE: 20230101
